FAERS Safety Report 14134384 (Version 1)
Quarter: 2017Q4

REPORT INFORMATION
  Report Type: Report from Study
  Country: US (occurrence: US)
  Receive Date: 20171027
  Receipt Date: 20171027
  Transmission Date: 20180321
  Serious: No
  Sender: FDA-Public Use
  Company Number: PHEH2017US034507

PATIENT
  Sex: Male

DRUGS (2)
  1. ENTRESTO [Suspect]
     Active Substance: SACUBITRIL\VALSARTAN
     Dosage: 0.5 DF (49 MG SACUBITRIL AND 51 MG VALSARTAN)
     Route: 048
  2. ENTRESTO [Suspect]
     Active Substance: SACUBITRIL\VALSARTAN
     Indication: PRODUCT USED FOR UNKNOWN INDICATION
     Dosage: 100 MG  (49 MG SACUBITRIL AND 51 MG VALSARTAN), UNK
     Route: 048

REACTIONS (4)
  - Wrong technique in product usage process [Unknown]
  - Malaise [Unknown]
  - Drug prescribing error [Unknown]
  - Blood pressure fluctuation [Unknown]
